FAERS Safety Report 13928786 (Version 1)
Quarter: 2017Q3

REPORT INFORMATION
  Report Type: Spontaneous
  Country: US (occurrence: None)
  Receive Date: 20170901
  Receipt Date: 20170901
  Transmission Date: 20171127
  Serious: No
  Sender: FDA-Public Use
  Company Number: None

PATIENT
  Age: 57 Year
  Sex: Female

DRUGS (1)
  1. MYCOPHENOLATE MOFETIL CAP 250MG [Suspect]
     Active Substance: MYCOPHENOLATE MOFETIL

REACTIONS (5)
  - Malaise [None]
  - Abdominal pain [None]
  - Back pain [None]
  - Inability to afford medication [None]
  - Drug dose omission [None]

NARRATIVE: CASE EVENT DATE: 20170831
